FAERS Safety Report 25210968 (Version 1)
Quarter: 2025Q2

REPORT INFORMATION
  Report Type: Spontaneous
  Country: US (occurrence: US)
  Receive Date: 20250417
  Receipt Date: 20250417
  Transmission Date: 20250716
  Serious: Yes (Hospitalization, Other)
  Sender: CALLIDITAS THERAPEUTICS AB
  Company Number: US-Calliditas-2025CAL00996

PATIENT
  Sex: Male

DRUGS (3)
  1. TARPEYO [Suspect]
     Active Substance: BUDESONIDE
     Indication: Product used for unknown indication
     Route: 048
     Dates: start: 20250201
  2. TARPEYO [Suspect]
     Active Substance: BUDESONIDE
     Indication: Product used for unknown indication
     Route: 048
     Dates: start: 202504
  3. INSULIN NOS [Concomitant]
     Active Substance: INSULIN NOS
     Indication: Glucose tolerance impaired

REACTIONS (2)
  - Hypervolaemia [Unknown]
  - Diabetes mellitus inadequate control [Unknown]
